FAERS Safety Report 4363731-8 (Version None)
Quarter: 2004Q2

REPORT INFORMATION
  Report Type: 
  Country: None (occurrence: None)
  Receive Date: 20040521
  Receipt Date: 20040521
  Transmission Date: 20050107
  Serious: Yes (Death)
  Sender: FDA-Public Use
  Company Number: None

PATIENT
  Sex: Female
  Weight: 48.9885 kg

DRUGS (8)
  1. CPT 11 100 MG/M2 [Suspect]
     Indication: COLORECTAL CANCER METASTATIC
     Dosage: 100 MG/M2 ONCE PER W IV
     Route: 042
     Dates: start: 20040205, end: 20040401
  2. FUDR 120 MG/KG [Suspect]
     Dosage: 120 MG/KG ONCE PER W IV
     Route: 042
     Dates: start: 20040205, end: 20040401
  3. PREVACID [Concomitant]
  4. TRILEPTAL [Concomitant]
  5. NORVASC [Concomitant]
  6. METOPROLOL [Concomitant]
  7. PLAVIX [Concomitant]
  8. IRON SULFATETHIAMIN COMPOUND TAB [Concomitant]

REACTIONS (1)
  - CEREBROVASCULAR ACCIDENT [None]
